FAERS Safety Report 7161557-3 (Version None)
Quarter: 2010Q4

REPORT INFORMATION
  Report Type: 
  Country: None (occurrence: None)
  Receive Date: 20101215
  Receipt Date: 20101209
  Transmission Date: 20110411
  Serious: Yes (Life-Threatening, Hospitalization)
  Sender: FDA-Public Use
  Company Number: PHHY2010JP81943

PATIENT
  Sex: Male

DRUGS (13)
  1. LAMISIL [Suspect]
     Indication: ONYCHOMYCOSIS
     Dosage: 125 MG DAILY
     Route: 048
     Dates: start: 20091201, end: 20100601
  2. LAMISIL [Suspect]
     Dosage: 125 MG DAILY
     Route: 048
     Dates: start: 20100901
  3. ASPIRIN [Suspect]
     Dosage: 100 MG DAILY
     Route: 048
     Dates: start: 20070401
  4. BEPRICOR [Suspect]
     Route: 048
  5. BEPRICOR [Suspect]
     Dosage: 100 MG DAILY
     Route: 048
     Dates: start: 20070401
  6. PLETAL [Suspect]
     Dosage: 200 MG DAILY
     Route: 048
     Dates: start: 20070401
  7. NU-LOTAN [Concomitant]
     Dosage: 25 MG
     Route: 048
     Dates: start: 20070401
  8. TEPRENONE [Concomitant]
     Dosage: 50 MG
     Route: 048
     Dates: start: 20070401
  9. MAGMITT KENEI [Concomitant]
     Dosage: 330 MG
     Route: 048
     Dates: start: 20070401
  10. AMLODIN [Concomitant]
     Dosage: 5 MG
     Route: 048
     Dates: start: 20070401
  11. LIPITOR [Concomitant]
     Dosage: 5 MG
     Route: 048
     Dates: start: 20070401
  12. HARURINE [Concomitant]
     Dosage: 6 DF
     Route: 048
     Dates: start: 20070801
  13. FLAVOXATE HYDROCHLORIDE [Concomitant]
     Dosage: 600 MG
     Route: 048
     Dates: start: 20070801

REACTIONS (4)
  - C-REACTIVE PROTEIN INCREASED [None]
  - MECHANICAL VENTILATION [None]
  - PULMONARY ALVEOLAR HAEMORRHAGE [None]
  - RESPIRATION ABNORMAL [None]
